FAERS Safety Report 5375466-3 (Version None)
Quarter: 2007Q2

REPORT INFORMATION
  Report Type: 
  Country: None (occurrence: None)
  Receive Date: 20070629
  Receipt Date: 20070620
  Transmission Date: 20071010
  Serious: Yes (Hospitalization)
  Sender: FDA-Public Use
  Company Number: FR-SHR-FR-2007-022969

PATIENT
  Age: 60 Year
  Sex: Male

DRUGS (6)
  1. FLUDARA [Suspect]
     Indication: LEUKAEMIA
     Dosage: UNK, UNK
     Route: 042
     Dates: start: 20070425, end: 20070430
  2. CYCLOPHOSPHAMIDE [Suspect]
     Dates: start: 20070425, end: 20070430
  3. PRAVASTATIN [Suspect]
     Dosage: 1 DF, 1X/DAY
     Route: 048
     Dates: end: 20070527
  4. ZELITREX                                /DEN/ [Suspect]
     Dosage: 500 MG, 2X/DAY
     Route: 048
     Dates: start: 20070425, end: 20070527
  5. PLAVIX [Suspect]
     Dosage: UNK, 1X/DAY
     Route: 048
  6. COTRIM [Suspect]
     Dosage: 1 TAB(S), 1X/DAY
     Route: 048
     Dates: start: 20070425, end: 20070522

REACTIONS (3)
  - PHOTOSENSITIVITY REACTION [None]
  - RASH ERYTHEMATOUS [None]
  - TOXIC SKIN ERUPTION [None]
